FAERS Safety Report 19178903 (Version 2)
Quarter: 2021Q2

REPORT INFORMATION
  Report Type: Spontaneous
  Country: US (occurrence: US)
  Receive Date: 20210426
  Receipt Date: 20210427
  Transmission Date: 20210717
  Serious: No
  Sender: FDA-Public Use
  Company Number: US-SA-2021SA123147

PATIENT
  Age: 75 Year
  Sex: Female

DRUGS (1)
  1. TOUJEO [Suspect]
     Active Substance: INSULIN GLARGINE
     Indication: TYPE 2 DIABETES MELLITUS
     Dosage: 38 IU, HS
     Route: 065
     Dates: start: 2019

REACTIONS (5)
  - Confusional state [Unknown]
  - Nervousness [Unknown]
  - Injury associated with device [Unknown]
  - Unevaluable event [Unknown]
  - Product storage error [Unknown]
